FAERS Safety Report 10167834 (Version 1)
Quarter: 2014Q2

REPORT INFORMATION
  Report Type: Spontaneous
  Country: IT (occurrence: IT)
  Receive Date: 20140512
  Receipt Date: 20140512
  Transmission Date: 20141212
  Serious: Yes (Hospitalization)
  Sender: FDA-Public Use
  Company Number: IT-TEVA-479102ISR

PATIENT
  Age: 63 Year
  Sex: Male

DRUGS (1)
  1. IBUPROFEN [Suspect]
     Indication: INFLUENZA
     Dates: start: 20130408, end: 20130408

REACTIONS (3)
  - Dyspnoea [Recovered/Resolved]
  - Hyperhidrosis [Recovered/Resolved]
  - Hypertensive crisis [Recovered/Resolved]
